FAERS Safety Report 10744994 (Version 2)
Quarter: 2015Q1

REPORT INFORMATION
  Report Type: Spontaneous
  Country: CA (occurrence: CA)
  Receive Date: 20150128
  Receipt Date: 20150203
  Transmission Date: 20150721
  Serious: Yes (Other)
  Sender: FDA-Public Use
  Company Number: CA-BAYER-2015-010231

PATIENT
  Age: 52 Year
  Sex: Female

DRUGS (1)
  1. MIRENA [Suspect]
     Active Substance: LEVONORGESTREL
     Dosage: 20 MCG/24HR, CONT
     Route: 015
     Dates: start: 201304

REACTIONS (6)
  - Complication of device removal [None]
  - Oestrogen receptor positive breast cancer [None]
  - Metastases to bone [None]
  - Embedded device [None]
  - Device breakage [None]
  - Device difficult to use [None]

NARRATIVE: CASE EVENT DATE: 201412
